FAERS Safety Report 18594350 (Version 1)
Quarter: 2020Q4

REPORT INFORMATION
  Report Type: Spontaneous
  Country: US (occurrence: US)
  Receive Date: 20201208
  Receipt Date: 20201208
  Transmission Date: 20210114
  Serious: Yes (Other)
  Sender: FDA-Public Use
  Company Number: None

PATIENT
  Age: 79 Year
  Sex: Male
  Weight: 84.8 kg

DRUGS (13)
  1. CHOLECALCIFEROL 1000 IU TAB [Concomitant]
     Dates: start: 20201202, end: 20201208
  2. ENOXAPARIN 40 MG [Concomitant]
     Active Substance: ENOXAPARIN
     Dates: start: 20201203, end: 20201207
  3. ALBUTEROL 180 MCG [Concomitant]
     Dates: start: 20201204, end: 20201208
  4. DEXAMETHASONE 6 MG [Concomitant]
     Dates: start: 20201202, end: 20201208
  5. LISINOPRIL 20 MG [Concomitant]
     Active Substance: LISINOPRIL
     Dates: start: 20201203, end: 20201208
  6. ATORVASTATIN 10 MG [Concomitant]
     Active Substance: ATORVASTATIN
     Dates: start: 20201203, end: 20201208
  7. ZINC SULFATE 220 MG [Concomitant]
     Dates: start: 20201202, end: 20201208
  8. KETOROLAC [Concomitant]
     Active Substance: KETOROLAC TROMETHAMINE
     Dates: start: 20201207, end: 20201207
  9. DOXYCYCLINE. [Concomitant]
     Active Substance: DOXYCYCLINE
     Dates: start: 20201205, end: 20201208
  10. PANTOPRAZOLE 40 MG [Concomitant]
     Active Substance: PANTOPRAZOLE SODIUM
     Dates: start: 20201203, end: 20201208
  11. REMDESIVIR. [Suspect]
     Active Substance: REMDESIVIR
     Indication: COVID-19
     Route: 042
     Dates: start: 20201202, end: 20201206
  12. ASPIRIN 81 MG [Concomitant]
     Active Substance: ASPIRIN
     Dates: start: 20201203, end: 20201207
  13. SYMBICORT 160 MCG-4.5 MCG [Concomitant]
     Dates: start: 20201202, end: 20201208

REACTIONS (4)
  - Liver function test increased [None]
  - Ecchymosis [None]
  - Arthralgia [None]
  - Product use in unapproved indication [None]

NARRATIVE: CASE EVENT DATE: 20201207
